FAERS Safety Report 8126526-5 (Version None)
Quarter: 2012Q1

REPORT INFORMATION
  Report Type: 
  Country: None (occurrence: None)
  Receive Date: 20120210
  Receipt Date: 20120201
  Transmission Date: 20120608
  Serious: Yes (Other)
  Sender: FDA-Public Use
  Company Number: BR-AMGEN-BRASP2012007997

PATIENT
  Age: 24 Year
  Sex: Female
  Weight: 104 kg

DRUGS (6)
  1. ENBREL [Suspect]
     Indication: RHEUMATOID ARTHRITIS
     Dosage: 50 MG, WEEKLY
     Route: 058
     Dates: start: 20120104
  2. SERTRALINE HYDROCHLORIDE [Concomitant]
     Indication: DEPRESSION
     Dosage: 50 MG, 1X/DAY (2 TABLETS ONCE DAILY)
     Dates: start: 20110601
  3. PREDNISOLONE [Concomitant]
     Indication: RHEUMATOID ARTHRITIS
     Dosage: 5 MG, 1X/DAY (1 TABLET ONCE DAILY)
     Dates: start: 20110101
  4. LEVOTHYROXINE SODIUM [Concomitant]
     Indication: HYPOTHYROIDISM
     Dosage: 100 MG, 1X/DAY (1 TABLET, ONCE DAILY)
     Dates: start: 20100101
  5. ARAVA [Concomitant]
     Indication: RHEUMATOID ARTHRITIS
     Dosage: 20 MG, 1X/DAY (1 TABLET, ONCE DAILY)
     Dates: start: 20110701
  6. FOLIC ACID [Concomitant]
     Dosage: 5 MG, WEEKLY (1 TABLET, 1X/WEEK)
     Dates: start: 20110101

REACTIONS (7)
  - BLOOD PRESSURE DECREASED [None]
  - INJECTION SITE ERYTHEMA [None]
  - DIZZINESS [None]
  - NAUSEA [None]
  - PYREXIA [None]
  - INJECTION SITE HAEMATOMA [None]
  - HEADACHE [None]
